FAERS Safety Report 21419674 (Version 1)
Quarter: 2022Q4

REPORT INFORMATION
  Report Type: Report from Study
  Country: RO (occurrence: RO)
  Receive Date: 20221006
  Receipt Date: 20221006
  Transmission Date: 20230112
  Serious: Yes (Death)
  Sender: FDA-Public Use
  Company Number: RO-ABBVIE-4140872

PATIENT
  Age: 69 Year
  Sex: Male

DRUGS (1)
  1. GLECAPREVIR\PIBRENTASVIR [Suspect]
     Active Substance: GLECAPREVIR\PIBRENTASVIR
     Indication: Chronic hepatitis
     Dosage: 300 MG/120 MG
     Route: 048
     Dates: start: 20220719, end: 20220910

REACTIONS (5)
  - Cardio-respiratory arrest [Fatal]
  - Pneumonia [Fatal]
  - Chronic hepatitis C [Fatal]
  - Acute kidney injury [Fatal]
  - Autoimmune thyroiditis [Fatal]

NARRATIVE: CASE EVENT DATE: 20220910
